FAERS Safety Report 7146035-X (Version None)
Quarter: 2010Q4

REPORT INFORMATION
  Report Type: 
  Country: None (occurrence: None)
  Receive Date: 20101123
  Receipt Date: 20101109
  Transmission Date: 20110411
  Serious: Yes (Death, Hospitalization, Other)
  Sender: FDA-Public Use
  Company Number: 2010AP002315

PATIENT
  Age: 58 Year
  Sex: Female

DRUGS (5)
  1. FLUOXETINE HYDROCHLORIDE [Suspect]
  2. TRAZODONE HYDROCHLORIDE [Suspect]
  3. ESCITALOPRAM [Suspect]
  4. BUSPIRONE [Suspect]
  5. TEMAZEPAM [Suspect]

REACTIONS (7)
  - APNOEA [None]
  - CARDIAC ARREST [None]
  - COMA [None]
  - LONG QT SYNDROME [None]
  - NERVOUS SYSTEM DISORDER [None]
  - SINUS TACHYCARDIA [None]
  - VENTRICULAR FIBRILLATION [None]
